FAERS Safety Report 25903461 (Version 2)
Quarter: 2025Q4

REPORT INFORMATION
  Report Type: Spontaneous
  Country: EU (occurrence: EU)
  Receive Date: 20251009
  Receipt Date: 20251112
  Transmission Date: 20260118
  Serious: Yes (Hospitalization)
  Sender: BEIGENE
  Company Number: None

PATIENT
  Age: 67 Year
  Weight: 60 kg

DRUGS (5)
  1. BRUKINSA [Suspect]
     Active Substance: ZANUBRUTINIB
     Indication: Mantle cell lymphoma refractory
     Dosage: 320 MILLIGRAM, MOST RECENT DOSE ON 03-SEP-2025
     Route: 065
  2. GLOFITAMAB [Suspect]
     Active Substance: GLOFITAMAB
     Indication: Mantle cell lymphoma refractory
     Dosage: 2.5 MILLIGRAM
     Route: 065
  3. OBINUTUZUMAB [Suspect]
     Active Substance: OBINUTUZUMAB
     Indication: Mantle cell lymphoma refractory
     Dosage: 2000 MILLIGRAM, MOST RECENT DOSE ON 28-AUG-2025
  4. TAMSULOSIN [Concomitant]
     Active Substance: TAMSULOSIN
     Dosage: 0.4 MILLIGRAM, QD
  5. HERBALS\SAW PALMETTO [Concomitant]
     Active Substance: HERBALS\SAW PALMETTO
     Dosage: 160 MILLIGRAM, QD

REACTIONS (2)
  - Gamma-glutamyltransferase increased [Recovered/Resolved]
  - Hepatic cytolysis [Recovered/Resolved]
